FAERS Safety Report 8397547-2 (Version None)
Quarter: 2012Q2

REPORT INFORMATION
  Report Type: 
  Country: None (occurrence: None)
  Receive Date: 20120529
  Receipt Date: 20120529
  Transmission Date: 20120825
  Serious: Yes (Disabling)
  Sender: FDA-Public Use
  Company Number: None

PATIENT
  Sex: Female
  Weight: 61.2356 kg

DRUGS (1)
  1. COPAXONE [Suspect]
     Indication: MULTIPLE SCLEROSIS RELAPSE
     Dosage: 20MG/1ML ONCE DAILY SQ
     Route: 058
     Dates: start: 20101101, end: 20120525

REACTIONS (8)
  - NERVOUSNESS [None]
  - EYE IRRITATION [None]
  - QUALITY OF LIFE DECREASED [None]
  - FEAR OF CROWDED PLACES [None]
  - NIGHTMARE [None]
  - ANXIETY [None]
  - AGORAPHOBIA [None]
  - INJECTION SITE REACTION [None]
